FAERS Safety Report 14952247 (Version 1)
Quarter: 2018Q2

REPORT INFORMATION
  Report Type: Spontaneous
  Country: US (occurrence: US)
  Receive Date: 20180530
  Receipt Date: 20180530
  Transmission Date: 20180711
  Serious: No
  Sender: FDA-Public Use
  Company Number: US-PFIZER INC-2018213381

PATIENT
  Age: 71 Year
  Sex: Male
  Weight: 99.79 kg

DRUGS (2)
  1. LYRICA [Suspect]
     Active Substance: PREGABALIN
     Indication: NEURALGIA
     Dosage: 50 MG, 3X/DAY
     Route: 048
  2. ROXICODONE [Concomitant]
     Active Substance: OXYCODONE HYDROCHLORIDE
     Indication: PAIN
     Dosage: 10 MG, AS NEEDED(5MG TWO TABLETS BY MOUTH FOUR TIMES DAILY AS NEEDED)
     Route: 048

REACTIONS (7)
  - Pain [Unknown]
  - Tension [Unknown]
  - Drug hypersensitivity [Unknown]
  - Abnormal behaviour [Unknown]
  - Pain in extremity [Unknown]
  - Drug ineffective [Unknown]
  - Condition aggravated [Unknown]
